FAERS Safety Report 8465439-6 (Version None)
Quarter: 2012Q2

REPORT INFORMATION
  Report Type: 
  Country: None (occurrence: None)
  Receive Date: 20120626
  Receipt Date: 20120620
  Transmission Date: 20120825
  Serious: Yes (Other)
  Sender: FDA-Public Use
  Company Number: PHFR2012GB001476

PATIENT
  Sex: Male

DRUGS (5)
  1. PAROXETINE [Concomitant]
     Indication: DEMENTIA
     Dosage: 40 UKN
     Route: 048
     Dates: start: 20110101
  2. TRAZODONE HCL [Concomitant]
     Indication: DEMENTIA
     Dosage: 50 UKN
     Route: 048
     Dates: start: 20110101
  3. SPIRIVA [Concomitant]
     Indication: ASTHMA
     Dosage: 2 DF
  4. CLOZARIL [Suspect]
     Indication: SCHIZOPHRENIA
     Dosage: UNK UKN, UNK
     Route: 048
     Dates: start: 20010701
  5. CLOZARIL [Suspect]
     Dosage: 750 UKN

REACTIONS (4)
  - HAEMATOCHEZIA [None]
  - HAEMOGLOBIN DECREASED [None]
  - GASTROINTESTINAL DISORDER [None]
  - NEUTROPHIL COUNT INCREASED [None]
